FAERS Safety Report 4578057-7 (Version None)
Quarter: 2005Q1

REPORT INFORMATION
  Report Type: 
  Country: None (occurrence: None)
  Receive Date: 20050209
  Receipt Date: 20050125
  Transmission Date: 20050727
  Serious: Yes (Other)
  Sender: FDA-Public Use
  Company Number: FR_050105696

PATIENT
  Age: 67 Year
  Sex: Male

DRUGS (8)
  1. PERGOLIDE MESYLATE [Suspect]
     Indication: PARKINSON'S DISEASE
     Dosage: 1 MG/2 DAY
     Dates: start: 20040101
  2. PROZAC [Concomitant]
  3. SINEMET [Concomitant]
  4. PROPRANOLOL [Concomitant]
  5. ASPIRIN [Concomitant]
  6. XATRAL (ALFUZOSIN HYDROCHLORIDE) [Concomitant]
  7. LIPANOR (CIPROFIBRATE) [Concomitant]
  8. MOTILIUM (DOMPERIDONE MALEATE) [Concomitant]

REACTIONS (3)
  - CONDITION AGGRAVATED [None]
  - DYSPNOEA [None]
  - SUPRAVENTRICULAR EXTRASYSTOLES [None]
